FAERS Safety Report 12909726 (Version 4)
Quarter: 2017Q4

REPORT INFORMATION
  Report Type: Report from Study
  Country: CA (occurrence: CA)
  Receive Date: 20161104
  Receipt Date: 20171105
  Transmission Date: 20180320
  Serious: Yes (Hospitalization)
  Sender: FDA-Public Use
  Company Number: PHHO2016CA015826

PATIENT
  Age: 12 Year
  Sex: Male
  Weight: 36.25 kg

DRUGS (6)
  1. ACZ885 [Suspect]
     Active Substance: CANAKINUMAB
     Indication: JUVENILE IDIOPATHIC ARTHRITIS
     Dosage: 4 MG/KG, Q4H
     Route: 030
     Dates: start: 20151207
  2. PEDIAPRED [Suspect]
     Active Substance: PREDNISOLONE SODIUM PHOSPHATE
     Indication: JUVENILE IDIOPATHIC ARTHRITIS
     Dosage: 10 MG, UNK
     Route: 048
     Dates: start: 20101118, end: 20161022
  3. BENADRYL [Concomitant]
     Active Substance: DIPHENHYDRAMINE HYDROCHLORIDE
     Indication: RHINITIS ALLERGIC
     Dosage: 25 MG, PRN QHS
     Route: 065
     Dates: start: 20160114
  4. BENADRYL [Concomitant]
     Active Substance: DIPHENHYDRAMINE HYDROCHLORIDE
     Indication: DERMATITIS
  5. PEDIAPRED [Suspect]
     Active Substance: PREDNISOLONE SODIUM PHOSPHATE
     Dosage: 10 MG, BID
     Route: 048
     Dates: start: 20161025
  6. TAPAZOLE [Concomitant]
     Active Substance: METHIMAZOLE
     Indication: HYPOTHYROIDISM
     Dosage: 7.5 MG, BID
     Route: 065
     Dates: start: 20160817

REACTIONS (1)
  - Pneumonia [Recovered/Resolved]

NARRATIVE: CASE EVENT DATE: 20161017
